FAERS Safety Report 5289980-2 (Version None)
Quarter: 2007Q1

REPORT INFORMATION
  Report Type: 
  Country: None (occurrence: None)
  Receive Date: 20070116
  Receipt Date: 20060321
  Transmission Date: 20070707
  Serious: Yes (Other)
  Sender: FDA-Public Use
  Company Number: HQWYE107109AUG04

PATIENT
  Age: 46 Year
  Sex: Female
  Weight: 59.02 kg

DRUGS (5)
  1. PREMPRO [Suspect]
     Dosage: 0.625 MG/2.5 MG DAILY, ORAL
     Route: 048
     Dates: start: 19980101, end: 20010101
  2. CYCRIN [Suspect]
  3. PREMARIN [Suspect]
     Dates: start: 19920101, end: 19980101
  4. PROVERA [Suspect]
     Indication: HORMONE REPLACEMENT THERAPY
     Dates: start: 19920101, end: 19980101
  5. ZYRTEC [Concomitant]

REACTIONS (3)
  - BREAST CANCER [None]
  - DYSTHYMIC DISORDER [None]
  - METRORRHAGIA [None]
